FAERS Safety Report 12521495 (Version 1)
Quarter: 2016Q3

REPORT INFORMATION
  Report Type: Report from Study
  Country: IT (occurrence: IT)
  Receive Date: 20160701
  Receipt Date: 20160701
  Transmission Date: 20161109
  Serious: Yes (Hospitalization)
  Sender: FDA-Public Use
  Company Number: IT-ROCHE-1724757

PATIENT
  Age: 58 Year
  Sex: Male
  Weight: 100 kg

DRUGS (18)
  1. RAMIPRIL. [Concomitant]
     Active Substance: RAMIPRIL
     Indication: HYPERTENSION
     Dosage: 1 TABLET
     Route: 048
     Dates: start: 20130609
  2. CARDIAZOL-PARACODINA [Concomitant]
     Route: 048
     Dates: start: 20130619
  3. FUROSEMIDE. [Concomitant]
     Active Substance: FUROSEMIDE
     Indication: HYPERTENSION
     Route: 048
     Dates: start: 20130912
  4. DEXERYL (ITALY) [Concomitant]
     Indication: DERMATITIS ACNEIFORM
     Route: 061
     Dates: start: 201512, end: 2016
  5. TRANEXAMIC ACID. [Concomitant]
     Active Substance: TRANEXAMIC ACID
     Route: 048
     Dates: start: 20130619
  6. LEVOTHYROXINE. [Concomitant]
     Active Substance: LEVOTHYROXINE
     Indication: HYPOTHYROIDISM
     Route: 048
     Dates: start: 20141104
  7. PARACETAMOL [Concomitant]
     Active Substance: ACETAMINOPHEN
     Indication: OSTEOARTHRITIS
     Route: 048
     Dates: start: 20150608
  8. CODEINE PHOSPHATE [Concomitant]
     Active Substance: CODEINE PHOSPHATE
     Indication: OSTEOARTHRITIS
     Route: 048
     Dates: start: 20150608
  9. NYSTATIN. [Concomitant]
     Active Substance: NYSTATIN
     Indication: STOMATITIS
     Route: 048
     Dates: start: 20160303, end: 201603
  10. CHLORPHENIRAMINE MALEATE. [Concomitant]
     Active Substance: CHLORPHENIRAMINE MALEATE
     Indication: PREMEDICATION
     Route: 042
     Dates: start: 20141222, end: 20160204
  11. ESOMEPRAZOLE [Concomitant]
     Active Substance: ESOMEPRAZOLE
     Route: 048
     Dates: start: 20130626
  12. AMLODIPINE [Concomitant]
     Active Substance: AMLODIPINE BESYLATE
     Indication: HYPERTENSION
     Route: 048
     Dates: start: 20130821
  13. BETAMETHASONE. [Concomitant]
     Active Substance: BETAMETHASONE
     Indication: DERMATITIS ACNEIFORM
     Route: 061
     Dates: start: 20160126, end: 20160324
  14. HYDROXYZINE DIHYDROCHLORIDE [Concomitant]
     Indication: PRURITUS
     Dosage: 1 TABLET
     Route: 048
     Dates: start: 20160204, end: 201603
  15. ATEZOLIZUMAB [Suspect]
     Active Substance: ATEZOLIZUMAB
     Indication: NON-SMALL CELL LUNG CANCER
     Dosage: DATE OF MOST RECENT DOSE: 02/FEB/2016
     Route: 042
     Dates: start: 20141110
  16. CLOBETASOL PROPIONATE. [Concomitant]
     Active Substance: CLOBETASOL PROPIONATE
     Indication: PRURITUS
     Route: 061
     Dates: start: 20160204, end: 201603
  17. BETAMETHASONE. [Concomitant]
     Active Substance: BETAMETHASONE
     Indication: RASH MACULO-PAPULAR
     Route: 061
     Dates: start: 20160126
  18. LIMECYCLINE [Concomitant]
     Indication: DERMATITIS ACNEIFORM
     Route: 048
     Dates: start: 201512, end: 201601

REACTIONS (1)
  - Dermatitis bullous [Recovered/Resolved]

NARRATIVE: CASE EVENT DATE: 20160309
